FAERS Safety Report 24678441 (Version 4)
Quarter: 2025Q4

REPORT INFORMATION
  Report Type: Report from Study
  Country: GB (occurrence: GB)
  Receive Date: 20241129
  Receipt Date: 20251114
  Transmission Date: 20260118
  Serious: Yes (Hospitalization, Other)
  Sender: TEVA
  Company Number: GB-TEVA-2019-GB-1102822

PATIENT
  Age: 45 Year
  Sex: Female

DRUGS (1)
  1. COPAXONE [Suspect]
     Active Substance: GLATIRAMER ACETATE
     Indication: Multiple sclerosis
     Dosage: DOSAGE TEXT: PRE-FILLED SYRINGE
     Route: 058
     Dates: start: 20151005

REACTIONS (8)
  - Huntington^s disease [Unknown]
  - Movement disorder [Unknown]
  - Fall [Unknown]
  - Injury [Unknown]
  - Gait disturbance [Unknown]
  - Mobility decreased [Unknown]
  - General physical health deterioration [Unknown]
  - Headache [Unknown]

NARRATIVE: CASE EVENT DATE: 20190601
